FAERS Safety Report 5310641-5 (Version None)
Quarter: 2007Q1

REPORT INFORMATION
  Report Type: 
  Country: None (occurrence: None)
  Receive Date: 20070201
  Receipt Date: 20061103
  Transmission Date: 20070707
  Serious: No
  Sender: FDA-Public Use
  Company Number: 258571

PATIENT
  Age: 53 Year
  Sex: Female
  Weight: 114.7 kg

DRUGS (6)
  1. LEVEMIR [Suspect]
     Indication: INSULIN-REQUIRING TYPE II DIABETES MELLITUS
     Dosage: 15 IU, QD, SUBCUTANEOUS
     Route: 058
     Dates: start: 20061101
  2. TOPROL-XL [Concomitant]
  3. ASPIRIN [Concomitant]
  4. GLUCOPHAGE /00082701/(METFORMIN) TABLET [Concomitant]
  5. LOTREL /01289101/(AMLODIPINE, DENAZEPRIL HYDROCHLORIDE) [Concomitant]
  6. GLUCOSAMINE (GLUCOSAMINE) TABLET [Concomitant]

REACTIONS (1)
  - DYSGEUSIA [None]
